FAERS Safety Report 7482172-8 (Version None)
Quarter: 2011Q2

REPORT INFORMATION
  Report Type: 
  Country: None (occurrence: None)
  Receive Date: 20110516
  Receipt Date: 20110513
  Transmission Date: 20111010
  Serious: No
  Sender: FDA-Public Use
  Company Number: US-PFIZER INC-2011103699

PATIENT
  Sex: Male
  Weight: 127 kg

DRUGS (9)
  1. EFFEXOR [Suspect]
     Indication: NEUROPATHY PERIPHERAL
     Dosage: 75 MG, DAILY
     Route: 048
     Dates: start: 20110201
  2. ACTOS [Concomitant]
     Indication: DIABETES MELLITUS
     Dosage: 20 MG, DAILY
     Route: 048
  3. METFORMIN [Concomitant]
     Indication: DIABETES MELLITUS
     Dosage: 1000 MG, 2X/DAY
  4. ADVICOR [Concomitant]
     Dosage: 1000/40MG
  5. VALSARTAN [Concomitant]
     Indication: BLOOD PRESSURE ABNORMAL
     Dosage: 220 MG, DAILY
     Route: 048
  6. FENOFIBRIC ACID [Concomitant]
     Indication: BLOOD CHOLESTEROL ABNORMAL
     Dosage: 45 MG, DAILY
     Route: 048
  7. GABAPENTIN [Suspect]
     Indication: NEUROPATHY PERIPHERAL
     Dosage: 150 MG, DAILY
     Dates: start: 20110201, end: 20110101
  8. VIAGRA [Suspect]
     Indication: SEXUAL DYSFUNCTION
     Dosage: UNK
     Route: 048
     Dates: start: 20040101
  9. LANTUS [Concomitant]
     Indication: DIABETES MELLITUS
     Dosage: 130 IU, DAILY

REACTIONS (7)
  - DRUG ADMINISTRATION ERROR [None]
  - SOMNOLENCE [None]
  - FEELING HOT [None]
  - EMOTIONAL DISORDER [None]
  - DRUG INEFFECTIVE [None]
  - BLOOD GLUCOSE DECREASED [None]
  - FATIGUE [None]
